FAERS Safety Report 7653790-9 (Version None)
Quarter: 2011Q3

REPORT INFORMATION
  Report Type: 
  Country: None (occurrence: None)
  Receive Date: 20110803
  Receipt Date: 20110801
  Transmission Date: 20111222
  Serious: Yes (Hospitalization)
  Sender: FDA-Public Use
  Company Number: FR-VIIV HEALTHCARE LIMITED-B0736226A

PATIENT
  Sex: Male

DRUGS (9)
  1. ABACAVIR SULFATE AND LAMIVUDINE [Suspect]
     Indication: HIV INFECTION
     Dosage: 1UNIT PER DAY
     Route: 048
     Dates: start: 20061123
  2. CODOLIPRANE [Concomitant]
     Route: 065
  3. REYATAZ [Suspect]
     Indication: HIV INFECTION
     Dosage: 300MG UNKNOWN
     Route: 065
     Dates: start: 20100114
  4. VITAMINE B12 [Concomitant]
     Route: 065
  5. VOLTAREN [Concomitant]
     Route: 065
  6. LEDERFOLINE [Concomitant]
     Route: 065
  7. LOPERAMIDE HCL [Concomitant]
     Route: 065
  8. NORVIR [Suspect]
     Indication: HIV INFECTION
     Dosage: 1UNIT PER DAY
     Route: 048
     Dates: start: 20100114
  9. UVEDOSE [Concomitant]
     Route: 065

REACTIONS (2)
  - NEPHROLITHIASIS [None]
  - HAEMATURIA [None]
